FAERS Safety Report 10680086 (Version 2)
Quarter: 2015Q1

REPORT INFORMATION
  Report Type: Spontaneous
  Country: JP (occurrence: JP)
  Receive Date: 20141229
  Receipt Date: 20150126
  Transmission Date: 20150720
  Serious: Yes (Hospitalization)
  Sender: FDA-Public Use
  Company Number: JP-GLAXOSMITHKLINE-JP2014JPN042283

PATIENT
  Age: 19 Year
  Sex: Female

DRUGS (2)
  1. LAMICTAL [Suspect]
     Active Substance: LAMOTRIGINE
     Indication: EPILEPSY
     Dosage: 25 MG, QD
     Route: 048
     Dates: start: 20141113, end: 20141210
  2. VALPROATE SODIUM. [Concomitant]
     Active Substance: VALPROATE SODIUM

REACTIONS (1)
  - Drug eruption [Recovering/Resolving]

NARRATIVE: CASE EVENT DATE: 20141128
